FAERS Safety Report 7555914-0 (Version None)
Quarter: 2011Q2

REPORT INFORMATION
  Report Type: 
  Country: None (occurrence: None)
  Receive Date: 20110618
  Receipt Date: 20110606
  Transmission Date: 20111010
  Serious: Yes (Hospitalization)
  Sender: FDA-Public Use
  Company Number: US-ELI_LILLY_AND_COMPANY-US201105001045

PATIENT
  Sex: Female
  Weight: 54.422 kg

DRUGS (12)
  1. FOLIC ACID [Concomitant]
  2. SIMVASTATIN [Concomitant]
  3. DIOVAN [Concomitant]
  4. SEROQUEL [Concomitant]
  5. TRAZODONE HCL [Concomitant]
  6. SENNA-MINT WAF [Concomitant]
  7. COREG [Concomitant]
  8. VITAMIN TAB [Concomitant]
     Dosage: UNK
     Route: 065
  9. PROTONIX [Concomitant]
  10. FORTEO [Suspect]
     Indication: OSTEOPOROSIS
     Dosage: 20 UG, QD
     Route: 058
     Dates: end: 20110322
  11. LACTULOSE [Concomitant]
  12. KLOR-CON [Concomitant]

REACTIONS (10)
  - URINARY TRACT INFECTION [None]
  - PNEUMONIA [None]
  - DEHYDRATION [None]
  - UPPER RESPIRATORY TRACT INFECTION [None]
  - CONFUSIONAL STATE [None]
  - IMMUNOSUPPRESSION [None]
  - MALAISE [None]
  - LOSS OF CONSCIOUSNESS [None]
  - ASPIRATION [None]
  - CYSTITIS [None]
